FAERS Safety Report 16996759 (Version 3)
Quarter: 2021Q1

REPORT INFORMATION
  Report Type: Report from Study
  Country: US (occurrence: US)
  Receive Date: 20191106
  Receipt Date: 20210210
  Transmission Date: 20210419
  Serious: Yes (Hospitalization, Other)
  Sender: FDA-Public Use
  Company Number: US-ROCHE-2453267

PATIENT
  Age: 42 Year
  Sex: Female
  Weight: 52.2 kg

DRUGS (6)
  1. PACLITAXEL. [Suspect]
     Active Substance: PACLITAXEL
     Indication: TRIPLE NEGATIVE BREAST CANCER
  2. CARBOPLATIN. [Suspect]
     Active Substance: CARBOPLATIN
     Indication: TRIPLE NEGATIVE BREAST CANCER
  3. ATEZOLIZUMAB. [Suspect]
     Active Substance: ATEZOLIZUMAB
     Indication: INVASIVE BREAST CARCINOMA
  4. PACLITAXEL. [Suspect]
     Active Substance: PACLITAXEL
     Indication: INVASIVE BREAST CARCINOMA
     Dosage: OVER 60 MINUTES ON DAY 1, 8, 15?LAST ADMINISTERED DATE:17/SEP/2019
     Route: 042
     Dates: start: 20190909
  5. CARBOPLATIN. [Suspect]
     Active Substance: CARBOPLATIN
     Indication: INVASIVE BREAST CARCINOMA
     Dosage: OVER 30 MINUTES ON DAY 1, AUC5?LAST ADMINISTERED DATE: 09?SEP?2019
     Route: 042
     Dates: start: 20190909
  6. ATEZOLIZUMAB. [Suspect]
     Active Substance: ATEZOLIZUMAB
     Indication: TRIPLE NEGATIVE BREAST CANCER
     Dosage: OVER 30?60 MINUTES ON DAY 1?LAST ADMINISTERED DATE: 09/SEP/2019
     Route: 042
     Dates: start: 20190710

REACTIONS (6)
  - Aspartate aminotransferase increased [Unknown]
  - Sepsis [Recovered/Resolved with Sequelae]
  - Neutrophil count decreased [Unknown]
  - Anaemia [Unknown]
  - Alanine aminotransferase increased [Unknown]
  - Urinary tract infection [Unknown]

NARRATIVE: CASE EVENT DATE: 20190925
